FAERS Safety Report 10670773 (Version 3)
Quarter: 2015Q4

REPORT INFORMATION
  Report Type: Spontaneous
  Country: JP (occurrence: JP)
  Receive Date: 20141223
  Receipt Date: 20151218
  Transmission Date: 20160304
  Serious: Yes (Hospitalization, Disabling)
  Sender: FDA-Public Use
  Company Number: JP-JNJFOC-20141215023

PATIENT
  Age: 69 Year
  Sex: Female

DRUGS (7)
  1. SOVRIAD [Suspect]
     Active Substance: SIMEPREVIR
     Indication: CHRONIC HEPATITIS C
     Route: 048
     Dates: start: 20140313, end: 20140603
  2. REBETOL [Suspect]
     Active Substance: RIBAVIRIN
     Indication: CHRONIC HEPATITIS C
     Route: 048
     Dates: start: 20140313, end: 20140619
  3. PROPACIL [Concomitant]
     Indication: HYPERTHYROIDISM
     Route: 048
     Dates: end: 20140820
  4. PEGINTRON [Suspect]
     Active Substance: PEGINTERFERON ALFA-2B
     Indication: CHRONIC HEPATITIS C
     Route: 058
     Dates: start: 20140313, end: 20140801
  5. CELECOX [Suspect]
     Active Substance: CELECOXIB
     Indication: MYALGIA
     Route: 048
     Dates: end: 20140820
  6. BEZAFIBRATE [Concomitant]
     Active Substance: BEZAFIBRATE
     Indication: DYSLIPIDAEMIA
     Route: 048
     Dates: end: 20140723
  7. REBETOL [Suspect]
     Active Substance: RIBAVIRIN
     Indication: CHRONIC HEPATITIS C
     Route: 048
     Dates: start: 20140703, end: 20140821

REACTIONS (2)
  - Anaemia [Not Recovered/Not Resolved]
  - Anti-neutrophil cytoplasmic antibody positive vasculitis [Recovering/Resolving]

NARRATIVE: CASE EVENT DATE: 20140326
